FAERS Safety Report 8240832-5 (Version None)
Quarter: 2012Q1

REPORT INFORMATION
  Report Type: 
  Country: None (occurrence: None)
  Receive Date: 20120328
  Receipt Date: 20120323
  Transmission Date: 20120608
  Serious: Yes (Death, Hospitalization, Other)
  Sender: FDA-Public Use
  Company Number: PHHY2012DE025858

PATIENT
  Sex: Female
  Weight: 70 kg

DRUGS (8)
  1. NIFEDIPINE [Concomitant]
     Dosage: 30 MG, DAILY
     Route: 048
     Dates: start: 19960124
  2. AMITRIPTYLINE HCL [Concomitant]
     Dosage: 75 MG, DAILY
     Route: 048
     Dates: start: 20040705
  3. DIURETICS [Concomitant]
     Dosage: UNK UKN, UNK
     Dates: start: 20091009
  4. ASPIRIN [Concomitant]
     Dosage: 100 MG, DAILY
     Route: 048
     Dates: start: 19960101
  5. LEVOTHYROXINE SODIUM [Concomitant]
     Dosage: 100 UG, DAILY
     Route: 048
     Dates: start: 19960101
  6. RASILEZ [Concomitant]
     Indication: HYPERTENSION
     Dosage: UNK UKN, UNK
  7. ZANERIL [Concomitant]
     Dosage: 20/10 MG DAILY
     Route: 048
     Dates: start: 20090130
  8. DICLOFENAC SODIUM [Suspect]
     Dosage: 50 MG, DAILY
     Route: 048
     Dates: start: 19960101

REACTIONS (7)
  - SHOCK HAEMORRHAGIC [None]
  - GOITRE [None]
  - HYPERTENSION [None]
  - DIABETES MELLITUS [None]
  - SPINAL COLUMN INJURY [None]
  - DEPRESSION [None]
  - HEPATIC CONGESTION [None]
